FAERS Safety Report 17511855 (Version 4)
Quarter: 2022Q3

REPORT INFORMATION
  Report Type: Report from Study
  Country: ES (occurrence: ES)
  Receive Date: 20200308
  Receipt Date: 20220906
  Transmission Date: 20221027
  Serious: Yes (Hospitalization)
  Sender: FDA-Public Use
  Company Number: NVSC2020ES046356

PATIENT
  Age: 41 Year
  Sex: Male
  Weight: 59.3 kg

DRUGS (10)
  1. GEMCITABINE [Suspect]
     Active Substance: GEMCITABINE
     Indication: Product used for unknown indication
     Dosage: 1376 MG, ONCE/SINGLE
     Route: 042
     Dates: start: 20200211, end: 20200218
  2. CISPLATIN [Suspect]
     Active Substance: CISPLATIN
     Indication: Plasma cell myeloma refractory
     Dosage: 129 MG, ONCE/SINGLE
     Route: 042
     Dates: start: 20200211
  3. RITUXIMAB [Suspect]
     Active Substance: RITUXIMAB
     Indication: Plasma cell myeloma refractory
     Dosage: 645 MG, ONCE/SINGLE
     Route: 042
     Dates: start: 20200211
  4. INDOMETHACIN [Concomitant]
     Active Substance: INDOMETHACIN
     Indication: Prophylaxis
     Dosage: UNK
     Route: 065
     Dates: start: 20200127, end: 20200306
  5. VITAMIN K [Concomitant]
     Active Substance: PHYTONADIONE
     Indication: General physical condition
     Dosage: UNK
     Route: 065
     Dates: start: 20200218
  6. ALLOPURINOL [Concomitant]
     Active Substance: ALLOPURINOL
     Indication: Prophylaxis
     Dosage: UNK
     Route: 065
     Dates: start: 20200210, end: 20200523
  7. ONDANSETRON [Concomitant]
     Active Substance: ONDANSETRON
     Indication: Prophylaxis
     Dosage: UNK
     Route: 065
     Dates: start: 20200210, end: 20200523
  8. OMEPRAZOLE [Concomitant]
     Active Substance: OMEPRAZOLE
     Indication: Prophylaxis
     Dosage: UNK
     Route: 065
     Dates: start: 20200210, end: 20200523
  9. FLUDARABINE [Concomitant]
     Active Substance: FLUDARABINE PHOSPHATE
     Indication: Chemotherapy
     Dosage: 42.5 MG, QD
     Route: 065
     Dates: start: 20200416
  10. CYCLOPHOSPHAMIDE [Concomitant]
     Active Substance: CYCLOPHOSPHAMIDE
     Indication: Chemotherapy
     Dosage: 425 MG, QD
     Route: 065
     Dates: start: 20200416

REACTIONS (2)
  - Hyperbilirubinaemia [Recovered/Resolved]
  - Hypofibrinogenaemia [Recovered/Resolved]

NARRATIVE: CASE EVENT DATE: 20200217
